FAERS Safety Report 4535053-3 (Version None)
Quarter: 2004Q4

REPORT INFORMATION
  Report Type: 
  Country: None (occurrence: None)
  Receive Date: 20041222
  Receipt Date: 20040504
  Transmission Date: 20050328
  Serious: Yes (Hospitalization)
  Sender: FDA-Public Use
  Company Number: US-ROCHE-366892

PATIENT
  Age: 45 Year
  Sex: Female

DRUGS (5)
  1. PEGASYS [Suspect]
     Indication: DRUG USE FOR UNKNOWN INDICATION
     Dosage: ROUTE DESCRIBED AS INJECTABLE.
     Route: 050
     Dates: start: 20040405, end: 20040815
  2. PEGASYS [Suspect]
     Dosage: ROUTE DESCRIBED AS INJECTABLE.
     Route: 050
     Dates: end: 20041207
  3. COPEGUS [Suspect]
     Indication: DRUG USE FOR UNKNOWN INDICATION
     Route: 048
     Dates: start: 20040405
  4. COPEGUS [Suspect]
     Route: 048
  5. OTHER MEDICATION [Concomitant]
     Indication: DRUG USE FOR UNKNOWN INDICATION
     Route: 065

REACTIONS (25)
  - ABDOMINAL PAIN [None]
  - ABDOMINAL PAIN UPPER [None]
  - ANAEMIA [None]
  - ANOREXIA [None]
  - COLITIS [None]
  - CONFUSIONAL STATE [None]
  - CRYING [None]
  - DEPRESSION [None]
  - DIARRHOEA HAEMORRHAGIC [None]
  - DRUG INEFFECTIVE [None]
  - DRUG INTOLERANCE [None]
  - FATIGUE [None]
  - FEELING ABNORMAL [None]
  - HOARSENESS [None]
  - JAUNDICE [None]
  - LABORATORY TEST ABNORMAL [None]
  - MEMORY IMPAIRMENT [None]
  - MIGRAINE [None]
  - NAUSEA [None]
  - OPEN WOUND [None]
  - PNEUMONIA [None]
  - SOMNOLENCE [None]
  - THERAPY NON-RESPONDER [None]
  - VOMITING [None]
  - WEIGHT DECREASED [None]
